FAERS Safety Report 15984046 (Version 2)
Quarter: 2019Q2

REPORT INFORMATION
  Report Type: Spontaneous
  Country: US (occurrence: US)
  Receive Date: 20190220
  Receipt Date: 20190412
  Transmission Date: 20190711
  Serious: No
  Sender: FDA-Public Use
  Company Number: US-TEVA-2019-US-1004673

PATIENT
  Age: 83 Year
  Sex: Female

DRUGS (1)
  1. METRONIDAZOLE. [Suspect]
     Active Substance: METRONIDAZOLE
     Indication: APICECTOMY
     Route: 048
     Dates: start: 201901

REACTIONS (5)
  - Oropharyngeal discomfort [Unknown]
  - Faeces soft [Recovered/Resolved]
  - Product solubility abnormal [Unknown]
  - Product taste abnormal [Unknown]
  - Cough [Not Recovered/Not Resolved]

NARRATIVE: CASE EVENT DATE: 20190117
